FAERS Safety Report 23342811 (Version 1)
Quarter: 2023Q4

REPORT INFORMATION
  Report Type: Spontaneous
  Country: US (occurrence: US)
  Receive Date: 20231227
  Receipt Date: 20231227
  Transmission Date: 20240109
  Serious: Yes (Other)
  Sender: FDA-Public Use
  Company Number: US-ELI_LILLY_AND_COMPANY-US202312013574

PATIENT
  Age: 79 Year
  Sex: Female

DRUGS (2)
  1. REYVOW [Suspect]
     Active Substance: LASMIDITAN
     Indication: Migraine
     Dosage: 50 MG, UNKNOWN
     Route: 048
  2. REYVOW [Suspect]
     Active Substance: LASMIDITAN
     Dosage: 100 MG, UNKNOWN
     Route: 048

REACTIONS (2)
  - Hiatus hernia [Unknown]
  - Thrombosis [Unknown]
